FAERS Safety Report 5175229-8 (Version None)
Quarter: 2006Q4

REPORT INFORMATION
  Report Type: 
  Country: None (occurrence: None)
  Receive Date: 20061206
  Receipt Date: 20061127
  Transmission Date: 20070319
  Serious: Yes (Life-Threatening, Hospitalization, Disabling)
  Sender: FDA-Public Use
  Company Number: GXKR2006FR07664

PATIENT
  Age: 3 Year
  Sex: Female

DRUGS (1)
  1. METHADONE HCL [Suspect]

REACTIONS (20)
  - ACCIDENTAL OVERDOSE [None]
  - ACUTE MYOCARDIAL INFARCTION [None]
  - BRADYPNOEA [None]
  - BRAIN OEDEMA [None]
  - BREATH SOUNDS ABNORMAL [None]
  - CARDIOGENIC SHOCK [None]
  - COMA [None]
  - DIABETES MELLITUS INSULIN-DEPENDENT [None]
  - DYSKINESIA [None]
  - HEPATIC FAILURE [None]
  - HEPATOMEGALY [None]
  - HYDROCEPHALUS [None]
  - HYPERGLYCAEMIA [None]
  - HYPOXIA [None]
  - JUGULAR VEIN DISTENSION [None]
  - MULTI-ORGAN FAILURE [None]
  - PNEUMONIA ASPIRATION [None]
  - PNEUMONIA HAEMOPHILUS [None]
  - PULMONARY OEDEMA [None]
  - VENTRICULAR DYSFUNCTION [None]
